FAERS Safety Report 6756403-3 (Version None)
Quarter: 2010Q2

REPORT INFORMATION
  Report Type: 
  Country: None (occurrence: None)
  Receive Date: 20100604
  Receipt Date: 20100601
  Transmission Date: 20101027
  Serious: Yes (Death, Hospitalization, Other)
  Sender: FDA-Public Use
  Company Number: FR-WYE-G06207710

PATIENT
  Sex: Male

DRUGS (7)
  1. NOVATREX [Suspect]
     Indication: RHEUMATOID ARTHRITIS
     Route: 048
     Dates: start: 20020101, end: 20100223
  2. CORTANCYL [Concomitant]
     Route: 048
  3. SPECIAFOLDINE [Concomitant]
     Dosage: UNKNOWN
  4. LERCAN [Concomitant]
     Dosage: UNKNOWN
  5. SINTROM [Concomitant]
     Dosage: UNKNOWN
  6. CORDARONE [Suspect]
     Dosage: UNKNOWN
     Route: 048
     Dates: end: 20091126
  7. NISISCO [Concomitant]
     Dosage: UNKNOWN

REACTIONS (7)
  - ACUTE RESPIRATORY DISTRESS SYNDROME [None]
  - ATRIAL FLUTTER [None]
  - BRONCHITIS [None]
  - CIRCULATORY COLLAPSE [None]
  - INTERSTITIAL LUNG DISEASE [None]
  - PULMONARY FIBROSIS [None]
  - SQUAMOUS CELL CARCINOMA [None]
